FAERS Safety Report 14527359 (Version 1)
Quarter: 2018Q1

REPORT INFORMATION
  Report Type: Report from Study
  Country: GB (occurrence: GB)
  Receive Date: 20180213
  Receipt Date: 20180213
  Transmission Date: 20180509
  Serious: Yes (Hospitalization, Other)
  Sender: FDA-Public Use
  Company Number: GB-TEVA-2018-GB-856639

PATIENT
  Age: 12 Year
  Sex: Female
  Weight: 53 kg

DRUGS (8)
  1. ONDANSETRON [Concomitant]
     Active Substance: ONDANSETRON
     Indication: PRODUCT USED FOR UNKNOWN INDICATION
  2. LENVATINIB [Suspect]
     Active Substance: LENVATINIB
     Route: 048
     Dates: start: 20161205, end: 20170113
  3. IFOSFAMIDE. [Suspect]
     Active Substance: IFOSFAMIDE
     Indication: OSTEOSARCOMA
     Route: 041
     Dates: start: 20161121, end: 20170216
  4. ETOPOSIDE. [Suspect]
     Active Substance: ETOPOSIDE
     Indication: OSTEOSARCOMA
     Route: 041
     Dates: start: 20161121, end: 20170216
  5. LENVATINIB [Suspect]
     Active Substance: LENVATINIB
     Indication: OSTEOSARCOMA
     Dosage: 18 MILLIGRAM DAILY;
     Route: 048
     Dates: start: 20161121, end: 20161130
  6. LENVATINIB [Suspect]
     Active Substance: LENVATINIB
     Route: 048
     Dates: start: 20170124, end: 20170313
  7. PHOSPHATE SANDOZ EFFERVESCENT [Concomitant]
  8. METOCLOPRAMIDE. [Concomitant]
     Active Substance: METOCLOPRAMIDE
     Indication: PRODUCT USED FOR UNKNOWN INDICATION

REACTIONS (13)
  - Pain [Not Recovered/Not Resolved]
  - Proctalgia [Unknown]
  - Erythema [Unknown]
  - Constipation [Unknown]
  - Febrile neutropenia [Recovered/Resolved]
  - Infection [Unknown]
  - Wound infection [Recovered/Resolved]
  - Abdominal pain [Recovering/Resolving]
  - Diarrhoea haemorrhagic [Unknown]
  - Arthropathy [Unknown]
  - Epistaxis [Unknown]
  - Back pain [Recovered/Resolved]
  - Bone marrow failure [Unknown]

NARRATIVE: CASE EVENT DATE: 20161128
